FAERS Safety Report 12623267 (Version 2)
Quarter: 2016Q3

REPORT INFORMATION
  Report Type: Spontaneous
  Country: TR (occurrence: TR)
  Receive Date: 20160804
  Receipt Date: 20160809
  Transmission Date: 20161109
  Serious: Yes (Disabling, Other)
  Sender: FDA-Public Use
  Company Number: TR-SA-2016SA137485

PATIENT
  Age: 64 Year
  Sex: Female

DRUGS (6)
  1. CETUXIMAB [Concomitant]
     Active Substance: CETUXIMAB
     Dosage: DAY 1 AND REPEATED EVERY 2 WEEKS
     Route: 040
  2. OXALIPLATIN. [Suspect]
     Active Substance: OXALIPLATIN
     Indication: COLON CANCER
     Route: 041
  3. 5-FU [Concomitant]
     Active Substance: FLUOROURACIL
     Indication: COLON CANCER
     Route: 042
  4. 5-FU [Concomitant]
     Active Substance: FLUOROURACIL
     Indication: COLON CANCER
     Route: 042
  5. CETUXIMAB [Concomitant]
     Active Substance: CETUXIMAB
     Route: 040
  6. OXALIPLATIN. [Suspect]
     Active Substance: OXALIPLATIN
     Indication: COLON CANCER
     Route: 041

REACTIONS (4)
  - Ototoxicity [Not Recovered/Not Resolved]
  - Sudden hearing loss [Not Recovered/Not Resolved]
  - Deafness neurosensory [Not Recovered/Not Resolved]
  - Tinnitus [Not Recovered/Not Resolved]
